FAERS Safety Report 7312710-7 (Version None)
Quarter: 2011Q1

REPORT INFORMATION
  Report Type: 
  Country: None (occurrence: None)
  Receive Date: 20110224
  Receipt Date: 20110214
  Transmission Date: 20110831
  Serious: Yes (Other)
  Sender: FDA-Public Use
  Company Number: US-BAYER-2011-014548

PATIENT
  Sex: Female
  Weight: 65 kg

DRUGS (7)
  1. FISH OIL [Concomitant]
     Dosage: 2 DF, QD
     Route: 048
  2. ASCORBIC ACID [Concomitant]
     Dosage: UNK
     Route: 048
  3. ASPIRIN [Suspect]
     Indication: ROTATOR CUFF SYNDROME
     Dosage: 2 DF, UNK
     Route: 048
     Dates: start: 20110211
  4. RED YEAST RICE [Concomitant]
     Dosage: UNK
     Route: 048
  5. ALEVE (CAPLET) [Suspect]
     Indication: ROTATOR CUFF SYNDROME
     Dosage: 440 MG, ONCE, BOTTLE COUNT 250S
     Route: 048
     Dates: start: 20110212, end: 20110212
  6. CENTRUM SILVER [Concomitant]
     Dosage: UNK
     Route: 048
  7. CITRACAL MAXIMUM [Concomitant]
     Dosage: 1 DF, BID

REACTIONS (7)
  - SHOCK [None]
  - NAUSEA [None]
  - HYPERHIDROSIS [None]
  - PAIN IN EXTREMITY [None]
  - VOMITING [None]
  - DIZZINESS [None]
  - ABASIA [None]
